FAERS Safety Report 22080293 (Version 1)
Quarter: 2023Q1

REPORT INFORMATION
  Report Type: Spontaneous
  Country: US (occurrence: US)
  Receive Date: 20230309
  Receipt Date: 20230309
  Transmission Date: 20230417
  Serious: Yes (Hospitalization)
  Sender: FDA-Public Use
  Company Number: US-ANIPHARMA-2023-US-005591

PATIENT
  Age: 79 Year
  Sex: Female
  Weight: 99.79 kg

DRUGS (3)
  1. VANCOMYCIN [Suspect]
     Active Substance: VANCOMYCIN
     Indication: Clostridium difficile infection
     Dosage: 125MG EVERY FOUR HOURS
     Route: 048
     Dates: start: 202203, end: 20230301
  2. VANCOMYCIN HYDROCHLORIDE [Suspect]
     Active Substance: VANCOMYCIN HYDROCHLORIDE
     Indication: Clostridium difficile infection
     Dosage: 2.5 ML EVERY FOUR HOURS
     Route: 048
     Dates: start: 202203
  3. ATENOLOL [Concomitant]
     Active Substance: ATENOLOL

REACTIONS (2)
  - Drug ineffective [Unknown]
  - Asthenia [Unknown]

NARRATIVE: CASE EVENT DATE: 20220307
